FAERS Safety Report 14144268 (Version 2)
Quarter: 2017Q4

REPORT INFORMATION
  Report Type: Report from Study
  Country: US (occurrence: US)
  Receive Date: 20171031
  Receipt Date: 20171121
  Transmission Date: 20180321
  Serious: Yes (Hospitalization, Other)
  Sender: FDA-Public Use
  Company Number: US-AMGEN-USASL2017163538

PATIENT
  Age: 66 Year
  Sex: Female

DRUGS (2)
  1. KYPROLIS [Suspect]
     Active Substance: CARFILZOMIB
     Indication: PLASMA CELL MYELOMA
     Dosage: UNK
     Route: 065
     Dates: start: 20171023
  2. REVLIMID [Concomitant]
     Active Substance: LENALIDOMIDE
     Indication: PLASMA CELL MYELOMA
     Dosage: UNK
     Dates: start: 20171023

REACTIONS (13)
  - Grip strength decreased [Unknown]
  - Cardiac disorder [Unknown]
  - Haemoglobin decreased [Unknown]
  - Pneumonia [Unknown]
  - Gait disturbance [Not Recovered/Not Resolved]
  - Atrial fibrillation [Unknown]
  - Asthenia [Not Recovered/Not Resolved]
  - Vessel puncture site bruise [Not Recovered/Not Resolved]
  - Weight decreased [Not Recovered/Not Resolved]
  - Platelet count decreased [Not Recovered/Not Resolved]
  - Adverse event [Unknown]
  - Abdominal pain upper [Unknown]
  - Gastrointestinal disorder [Unknown]

NARRATIVE: CASE EVENT DATE: 2017
